FAERS Safety Report 5262428-X (Version None)
Quarter: 2007Q1

REPORT INFORMATION
  Report Type: 
  Country: None (occurrence: None)
  Receive Date: 20070312
  Receipt Date: 20070307
  Transmission Date: 20070707
  Serious: Yes (Hospitalization)
  Sender: FDA-Public Use
  Company Number: IT-BRISTOL-MYERS SQUIBB COMPANY-13703608

PATIENT
  Age: 70 Year
  Sex: Male

DRUGS (1)
  1. AMOXICILLIN [Suspect]

REACTIONS (3)
  - ANAPHYLACTIC REACTION [None]
  - ELECTROCARDIOGRAM ST SEGMENT ELEVATION [None]
  - MYOCARDIAL INFARCTION [None]
